FAERS Safety Report 8914335 (Version 3)
Quarter: 2013Q1

REPORT INFORMATION
  Report Type: Spontaneous
  Country: FR (occurrence: FR)
  Receive Date: 20121119
  Receipt Date: 20130124
  Transmission Date: 20140127
  Serious: Yes (Other)
  Sender: FDA-Public Use
  Company Number: FR-JNJFOC-20121106551

PATIENT
  Age: 48 Year
  Sex: Male
  Weight: 72 kg

DRUGS (5)
  1. STELARA [Suspect]
     Indication: PSORIASIS
     Dosage: THREE INJECTIONS
     Route: 058
     Dates: start: 20120713
  2. STELARA [Suspect]
     Indication: PSORIASIS
     Dosage: THREE INJECTIONS
     Route: 058
     Dates: start: 20120813
  3. STELARA [Suspect]
     Indication: PSORIASIS
     Dosage: THREE INJECTIONS
     Route: 058
     Dates: start: 20121113
  4. HAVLANE [Concomitant]
     Indication: INSOMNIA
     Route: 048
  5. CORTANCYL [Concomitant]
     Indication: PSORIATIC ARTHROPATHY
     Route: 048

REACTIONS (5)
  - Muscle spasms [Unknown]
  - Myalgia [Recovered/Resolved]
  - Rectal tenesmus [Unknown]
  - Diarrhoea [Unknown]
  - Abdominal pain [Unknown]
